FAERS Safety Report 7148388-5 (Version None)
Quarter: 2010Q4

REPORT INFORMATION
  Report Type: 
  Country: None (occurrence: None)
  Receive Date: 20101209
  Receipt Date: 20101130
  Transmission Date: 20110411
  Serious: Yes (Hospitalization)
  Sender: FDA-Public Use
  Company Number: US-ELI_LILLY_AND_COMPANY-US201010005328

PATIENT
  Sex: Male

DRUGS (4)
  1. HUMALOG [Suspect]
     Indication: DIABETES MELLITUS
     Dosage: UNK, AS NEEDED
     Dates: start: 20030101
  2. HUMALOG [Suspect]
     Dosage: UNK, AS NEEDED
  3. LANTUS [Concomitant]
  4. GABAPENTIN [Concomitant]

REACTIONS (2)
  - CORONARY ARTERY DISEASE [None]
  - NEUROPATHY PERIPHERAL [None]
